FAERS Safety Report 4933236-1 (Version None)
Quarter: 2006Q1

REPORT INFORMATION
  Report Type: 
  Country: None (occurrence: None)
  Receive Date: 20060306
  Receipt Date: 20050822
  Transmission Date: 20060701
  Serious: Yes (Death, Hospitalization)
  Sender: FDA-Public Use
  Company Number: US-MERCK-0508USA03650

PATIENT
  Age: 70 Year
  Sex: Female
  Weight: 55 kg

DRUGS (8)
  1. VIOXX [Suspect]
     Indication: OSTEOARTHRITIS
     Route: 048
     Dates: start: 19991115, end: 20030708
  2. NORTRIPTYLINE [Concomitant]
     Route: 065
  3. PROPRANOLOL HYDROCHLORIDE [Concomitant]
     Route: 065
  4. LEVOXYL [Concomitant]
     Route: 065
  5. RANITIDINE [Concomitant]
     Route: 065
  6. PHENYTOIN [Concomitant]
     Route: 065
  7. ATENOLOL [Concomitant]
     Route: 065
  8. DEXAMETHASONE [Concomitant]
     Route: 065

REACTIONS (15)
  - ACUTE MYOCARDIAL INFARCTION [None]
  - ANKLE FRACTURE [None]
  - BLOOD PRESSURE SYSTOLIC INCREASED [None]
  - CEREBROVASCULAR ACCIDENT [None]
  - COLITIS ISCHAEMIC [None]
  - DIARRHOEA [None]
  - FAECALOMA [None]
  - HEART RATE INCREASED [None]
  - LEUKOCYTOSIS [None]
  - LUNG INFILTRATION [None]
  - ORGAN FAILURE [None]
  - PULMONARY EMBOLISM [None]
  - RESPIRATORY ARREST [None]
  - TACHYPNOEA [None]
  - THROMBOSIS [None]
